FAERS Safety Report 6064581-7 (Version None)
Quarter: 2009Q1

REPORT INFORMATION
  Report Type: 
  Country: None (occurrence: None)
  Receive Date: 20090204
  Receipt Date: 20090130
  Transmission Date: 20090719
  Serious: Yes (Other)
  Sender: FDA-Public Use
  Company Number: B0555201A

PATIENT
  Age: 10 Year
  Sex: Male
  Weight: 30 kg

DRUGS (4)
  1. RELENZA [Suspect]
     Indication: INFLUENZA
     Dosage: 5MG TWICE PER DAY
     Route: 055
     Dates: start: 20090119, end: 20090119
  2. CALONAL [Concomitant]
     Route: 048
     Dates: start: 20090119
  3. UNKNOWN DRUG [Concomitant]
     Route: 048
     Dates: start: 20090119
  4. KLARICID [Concomitant]
     Route: 048
     Dates: start: 20090119

REACTIONS (1)
  - ABNORMAL BEHAVIOUR [None]
